FAERS Safety Report 15263684 (Version 2)
Quarter: 2018Q4

REPORT INFORMATION
  Report Type: Spontaneous
  Country: US (occurrence: US)
  Receive Date: 20180810
  Receipt Date: 20181114
  Transmission Date: 20190204
  Serious: No
  Sender: FDA-Public Use
  Company Number: US-ASTRAZENECA-2018SE94465

PATIENT
  Age: 54 Year
  Sex: Male

DRUGS (2)
  1. TOUJEO [Concomitant]
     Active Substance: INSULIN GLARGINE
     Route: 065
  2. BYDUREON BCISE [Suspect]
     Active Substance: EXENATIDE
     Route: 058
     Dates: start: 2018

REACTIONS (1)
  - Anal incontinence [Unknown]

NARRATIVE: CASE EVENT DATE: 2018
